FAERS Safety Report 5328648-0 (Version None)
Quarter: 2007Q2

REPORT INFORMATION
  Report Type: 
  Country: None (occurrence: None)
  Receive Date: 20070514
  Receipt Date: 20070508
  Transmission Date: 20071010
  Serious: Yes (Hospitalization)
  Sender: FDA-Public Use
  Company Number: 2006SP006790

PATIENT
  Age: 52 Year
  Sex: Male
  Weight: 65 kg

DRUGS (16)
  1. TEMODAL [Suspect]
     Indication: GLIOBLASTOMA MULTIFORME
     Dosage: SEE IMAGE
     Route: 048
     Dates: start: 20060828, end: 20060914
  2. TEMODAL [Suspect]
     Indication: GLIOBLASTOMA MULTIFORME
     Dosage: SEE IMAGE
     Route: 048
     Dates: start: 20060925, end: 20060929
  3. TEMODAL [Suspect]
     Indication: GLIOBLASTOMA MULTIFORME
     Dosage: SEE IMAGE
     Route: 048
     Dates: start: 20061124, end: 20061129
  4. AMOXAN (CON.) [Concomitant]
  5. ISALON (CON.) [Concomitant]
  6. MYSTAN (CON.) [Concomitant]
  7. DEPAKENE-R (CON.) [Concomitant]
  8. ALEVIATIN (CON.) [Concomitant]
  9. MAGNESIUM OXIDE (CON.) [Concomitant]
  10. GLYCYRON (CON.) [Concomitant]
  11. KYTRIL (CON.) [Concomitant]
  12. TANATRIL (CON.) [Concomitant]
  13. CEFSPAN (CON.) [Concomitant]
  14. CRAVIT (CON.) [Concomitant]
  15. AZUNOL /00317302/ (CON.) [Concomitant]
  16. LOXONIN (CON.) [Concomitant]

REACTIONS (5)
  - BONE MARROW FAILURE [None]
  - C-REACTIVE PROTEIN INCREASED [None]
  - HAEMOGLOBIN DECREASED [None]
  - PLATELET COUNT DECREASED [None]
  - PNEUMONIA BACTERIAL [None]
